FAERS Safety Report 6348857-1 (Version None)
Quarter: 2009Q3

REPORT INFORMATION
  Report Type: 
  Country: None (occurrence: None)
  Receive Date: 20090908
  Receipt Date: 20090824
  Transmission Date: 20100115
  Serious: Yes (Hospitalization)
  Sender: FDA-Public Use
  Company Number: 2008001098

PATIENT
  Age: 64 Year
  Sex: Female
  Weight: 56 kg

DRUGS (17)
  1. ERLOTINIB  / PLACEBO [Suspect]
     Indication: NON-SMALL CELL LUNG CANCER
     Dosage: 150 MG, QD, ORAL
     Route: 048
     Dates: start: 20080401
  2. BEVACIZUMAB (INJECTION FOR INFUSION) [Suspect]
     Indication: NON-SMALL CELL LUNG CANCER
     Dosage: 15 MG/KG, Q3W, INTRAVENOUS
     Route: 042
     Dates: start: 20080401
  3. BEVACIZUMAB (INJECTION FOR INFUSION) [Suspect]
  4. OSTEO BIFLEX PRODUCT [Suspect]
  5. LEXAPRO [Concomitant]
  6. OXYCONTIN [Concomitant]
  7. XANAX [Concomitant]
  8. PROTONIX [Concomitant]
  9. RITALIN [Concomitant]
  10. CALCIUM (CALCIUM) [Concomitant]
  11. MULTI-VITAMIN [Concomitant]
  12. ALLEGRA-D (ALLEGRA -D) [Concomitant]
  13. ALEVE [Concomitant]
  14. COMPAZINE [Concomitant]
  15. KYTRIL [Concomitant]
  16. PHENERGAN [Concomitant]
  17. REGLAN [Concomitant]

REACTIONS (6)
  - COUGH [None]
  - DYSPNOEA [None]
  - HAEMATOCRIT DECREASED [None]
  - HAEMOGLOBIN DECREASED [None]
  - HAEMOPTYSIS [None]
  - LUNG INFILTRATION [None]
